FAERS Safety Report 8410880 (Version 2)
Quarter: 2016Q2

REPORT INFORMATION
  Report Type: Report from Study
  Country: US (occurrence: US)
  Receive Date: 20120217
  Receipt Date: 20160406
  Transmission Date: 20160815
  Serious: Yes (Hospitalization, Other)
  Sender: FDA-Public Use
  Company Number: US-SANOFI-AVENTIS-2012SA008297

PATIENT
  Age: 81 Year
  Sex: Female

DRUGS (2)
  1. LANTUS [Suspect]
     Active Substance: INSULIN GLARGINE
     Indication: TYPE 2 DIABETES MELLITUS
     Dosage: LANTUS PRODUCT START DATE: 2.5-3 YEARS DOSE:30 UNIT(S)
     Route: 058
     Dates: end: 20160327
  2. LANTUS [Suspect]
     Active Substance: INSULIN GLARGINE
     Indication: TYPE 2 DIABETES MELLITUS
     Dosage: LANTUS PRODUCT START DATE: 2.5-3 YEARS DOSE:7 UNIT(S)
     Route: 058
     Dates: start: 2010

REACTIONS (3)
  - Hip fracture [Recovered/Resolved]
  - Umbilical hernia [Unknown]
  - Squamous cell carcinoma [Not Recovered/Not Resolved]

NARRATIVE: CASE EVENT DATE: 201111
